FAERS Safety Report 8308307-2 (Version None)
Quarter: 2012Q2

REPORT INFORMATION
  Report Type: 
  Country: None (occurrence: None)
  Receive Date: 20120424
  Receipt Date: 20050919
  Transmission Date: 20120825
  Serious: Yes (Hospitalization)
  Sender: FDA-Public Use
  Company Number: US-TEVA-2009008206

PATIENT
  Sex: Male
  Weight: 83.99 kg

DRUGS (10)
  1. METOPROLOL TARTRATE [Concomitant]
     Indication: HYPERTENSION
     Dates: start: 20000101
  2. CALCIUM CARBONATE [Concomitant]
     Dates: start: 20030101
  3. LIPITOR [Concomitant]
     Indication: BLOOD CHOLESTEROL INCREASED
     Dates: start: 20050701
  4. LISINOPRIL [Concomitant]
     Indication: HYPERTENSION
     Dates: start: 20000101
  5. GLYBURIDE [Concomitant]
     Indication: DIABETES MELLITUS
     Dates: start: 20030101
  6. MAGNESIUM OXIDE [Concomitant]
     Dates: start: 20030101
  7. ADVAIR DISKUS 100/50 [Concomitant]
     Dates: start: 20030101
  8. BUMETANIDE [Concomitant]
     Indication: HYPERTENSION
     Dates: start: 20030101
  9. INSULIN [Concomitant]
     Indication: DIABETES MELLITUS
     Dates: start: 20030101
  10. PROVIGIL [Suspect]
     Indication: DEPRESSION
     Dosage: 200 MILLIGRAM;
     Route: 048
     Dates: start: 20050701

REACTIONS (1)
  - DEVICE RELATED INFECTION [None]
